FAERS Safety Report 9629484 (Version 1)
Quarter: 2013Q4

REPORT INFORMATION
  Report Type: Spontaneous
  Country: US (occurrence: US)
  Receive Date: 20131017
  Receipt Date: 20131017
  Transmission Date: 20140711
  Serious: Yes (Other)
  Sender: FDA-Public Use
  Company Number: US-TEVA-438530USA

PATIENT
  Sex: Male

DRUGS (3)
  1. CARBOPLATIN [Suspect]
     Indication: RETINOBLASTOMA
     Dosage: 2CC OF 10 MG/CC
     Route: 057
  2. ETOPOSIDE [Suspect]
     Indication: RETINOBLASTOMA
  3. VINCRISTINE [Suspect]
     Indication: RETINOBLASTOMA

REACTIONS (4)
  - Periorbital disorder [Unknown]
  - Glaucoma [Unknown]
  - Retinal detachment [Unknown]
  - Retinoblastoma [Unknown]
